FAERS Safety Report 4323328-2 (Version None)
Quarter: 2004Q1

REPORT INFORMATION
  Report Type: 
  Country: None (occurrence: None)
  Receive Date: 20040323
  Receipt Date: 20040212
  Transmission Date: 20041129
  Serious: No
  Sender: FDA-Public Use
  Company Number: M03-341-167

PATIENT
  Age: 43 Year
  Sex: Female
  Weight: 64 kg

DRUGS (4)
  1. VELCADE [Suspect]
     Indication: MULTIPLE MYELOMA
     Dosage: 1.6 MG BIW, INTRAVENOUS (NOT OTHERWISE SPECIFIED(
     Route: 042
     Dates: start: 20030825
  2. FAMVIR [Concomitant]
  3. THALIDOMIDE [Concomitant]
  4. WARFARIN SODIUM [Concomitant]

REACTIONS (2)
  - NEUROPATHY PERIPHERAL [None]
  - VISUAL ACUITY REDUCED [None]
